FAERS Safety Report 20382150 (Version 1)
Quarter: 2022Q1

REPORT INFORMATION
  Report Type: Spontaneous
  Country: US (occurrence: None)
  Receive Date: 20220126
  Receipt Date: 20220126
  Transmission Date: 20220423
  Serious: No
  Sender: FDA-Public Use
  Company Number: None

PATIENT
  Age: 66 Year
  Sex: Female
  Weight: 57.6 kg

DRUGS (2)
  1. INTRAROSA [Suspect]
     Active Substance: PRASTERONE
     Indication: Endometrial disorder
     Dosage: OTHER QUANTITY : 28 SUPPOSITORY(IES);?FREQUENCY : AT BEDTIME; INSERT?
     Route: 067
     Dates: start: 20201202, end: 20210319
  2. INTRAROSA [Suspect]
     Active Substance: PRASTERONE
     Indication: Atrophic vulvovaginitis

REACTIONS (12)
  - Trichorrhexis [None]
  - Alopecia [None]
  - Skin burning sensation [None]
  - Sensitive skin [None]
  - Pruritus [None]
  - Tenderness [None]
  - Blood pressure increased [None]
  - Insomnia [None]
  - Tachyphrenia [None]
  - Abdominal discomfort [None]
  - Feeling jittery [None]
  - Diffuse alopecia [None]

NARRATIVE: CASE EVENT DATE: 20210319
